FAERS Safety Report 9560732 (Version 1)
Quarter: 2013Q3

REPORT INFORMATION
  Report Type: Spontaneous
  Country: US (occurrence: US)
  Receive Date: 20130927
  Receipt Date: 20130927
  Transmission Date: 20140515
  Serious: No
  Sender: FDA-Public Use
  Company Number: US-BIOGENIDEC-2013BI053955

PATIENT
  Age: 74 Year
  Sex: Female

DRUGS (3)
  1. TECFIDERA [Suspect]
     Indication: MULTIPLE SCLEROSIS
     Route: 048
     Dates: end: 20130601
  2. TECFIDERA [Suspect]
     Indication: MULTIPLE SCLEROSIS
     Route: 048
     Dates: start: 20130601
  3. CYMBALTA [Concomitant]
     Indication: DEPRESSION

REACTIONS (5)
  - Confusional state [Not Recovered/Not Resolved]
  - Flushing [Recovered/Resolved]
  - Rash [Not Recovered/Not Resolved]
  - Depression [Unknown]
  - Affect lability [Not Recovered/Not Resolved]
